FAERS Safety Report 22084943 (Version 1)
Quarter: 2023Q1

REPORT INFORMATION
  Report Type: Spontaneous
  Country: US (occurrence: US)
  Receive Date: 20230310
  Receipt Date: 20230310
  Transmission Date: 20230418
  Serious: Yes (Hospitalization, Other)
  Sender: FDA-Public Use
  Company Number: US-ADVANZ PHARMA-202302001455

PATIENT

DRUGS (2)
  1. DIGOXIN [Suspect]
     Active Substance: DIGOXIN
     Indication: Atrial fibrillation
     Dosage: 0.25 MG, QD
  2. DIGOXIN [Suspect]
     Active Substance: DIGOXIN
     Indication: Cardiac failure congestive

REACTIONS (5)
  - Mental status changes [Recovering/Resolving]
  - Hyperkalaemia [Unknown]
  - Bradycardia [Recovering/Resolving]
  - Atrioventricular block [Unknown]
  - Toxicity to various agents [Unknown]
